FAERS Safety Report 7763126-0 (Version None)
Quarter: 2011Q3

REPORT INFORMATION
  Report Type: 
  Country: None (occurrence: None)
  Receive Date: 20110920
  Receipt Date: 20110908
  Transmission Date: 20111222
  Serious: Yes (Hospitalization)
  Sender: FDA-Public Use
  Company Number: PHHO2011FR05139

PATIENT
  Sex: Female
  Weight: 48 kg

DRUGS (7)
  1. VALGANCICLOVIR [Concomitant]
     Dosage: UNK
     Dates: start: 20110219
  2. RAD 666 / RAD 001A [Suspect]
     Indication: RENAL TRANSPLANT
     Dosage: 1.5 MG, UNK
     Dates: start: 20110223, end: 20110302
  3. OMEPRAZOLE [Concomitant]
     Dosage: 20 MG
     Dates: start: 20110218
  4. BACTRIM [Concomitant]
     Dosage: UNK
     Dates: start: 20110308
  5. PROGRAF [Concomitant]
     Dosage: 5 MG
     Dates: start: 20110302
  6. PREDNISOLONE [Suspect]
     Indication: RENAL TRANSPLANT
     Dosage: UNK
     Route: 048
     Dates: start: 20110219
  7. MYCOPHENOLATE MOFETIL (CELLCEPT) [Suspect]
     Indication: RENAL TRANSPLANT
     Dosage: 2 G, QD
     Route: 048
     Dates: start: 20110218

REACTIONS (4)
  - RETCHING [None]
  - WOUND DEHISCENCE [None]
  - INCISIONAL HERNIA [None]
  - ACQUIRED DIAPHRAGMATIC EVENTRATION [None]
